FAERS Safety Report 8046896-6 (Version None)
Quarter: 2012Q1

REPORT INFORMATION
  Report Type: 
  Country: None (occurrence: None)
  Receive Date: 20120116
  Receipt Date: 20120110
  Transmission Date: 20120608
  Serious: Yes (Other)
  Sender: FDA-Public Use
  Company Number: US-JNJFOC-20120102632

PATIENT
  Sex: Male
  Weight: 68.04 kg

DRUGS (14)
  1. POTASSIUM CHLORIDE [Concomitant]
     Route: 048
  2. DIGOXIN [Concomitant]
     Route: 048
  3. FOLIC ACID [Concomitant]
     Route: 048
  4. OXYCODONE HCL [Suspect]
     Indication: NEURALGIA
     Route: 048
     Dates: start: 20111201, end: 20120101
  5. SINGULAIR [Concomitant]
     Route: 048
  6. ZOCOR [Concomitant]
     Route: 048
  7. DIOVAN [Concomitant]
     Route: 048
  8. FENTANYL-100 [Suspect]
     Indication: POST HERPETIC NEURALGIA
     Dosage: NDC#0781-7244-53
     Route: 062
     Dates: start: 20090101
  9. COUMADIN [Concomitant]
     Indication: ANTICOAGULANT THERAPY
     Route: 048
  10. PANTOPRAZOLE [Concomitant]
     Indication: GASTRIC DISORDER
     Route: 048
  11. FENTANYL-100 [Suspect]
     Indication: PAIN
     Dosage: NDC#0781-7244-53
     Route: 062
     Dates: start: 20090101
  12. ASPIRIN TAB [Concomitant]
     Route: 048
  13. TORSEMIDE [Concomitant]
     Indication: DIURETIC THERAPY
     Dosage: TOTAL 120 MG PER DAY
     Route: 048
  14. METOPROLOL SUCCINATE [Concomitant]
     Route: 048

REACTIONS (5)
  - CARPAL TUNNEL SYNDROME [None]
  - INAPPROPRIATE SCHEDULE OF DRUG ADMINISTRATION [None]
  - THERAPEUTIC RESPONSE DECREASED [None]
  - OEDEMA PERIPHERAL [None]
  - APPLICATION SITE PAIN [None]
